FAERS Safety Report 16941919 (Version 2)
Quarter: 2019Q4

REPORT INFORMATION
  Report Type: Spontaneous
  Country: JP (occurrence: JP)
  Receive Date: 20191021
  Receipt Date: 20191209
  Transmission Date: 20200122
  Serious: Yes (Hospitalization)
  Sender: FDA-Public Use
  Company Number: JP-JNJFOC-20191030333

PATIENT
  Age: 63 Year
  Sex: Male
  Weight: 81.6 kg

DRUGS (7)
  1. RIVAROXABAN [Suspect]
     Active Substance: RIVAROXABAN
     Indication: PULMONARY EMBOLISM
     Dosage: 15 MG, QD
     Route: 048
     Dates: start: 20191015, end: 20191105
  2. ESOMEPRAZOLE. [Concomitant]
     Active Substance: ESOMEPRAZOLE MAGNESIUM
     Dosage: 20 MG, QD
     Dates: start: 20191025
  3. GENTAMICIN SULFATE. [Concomitant]
     Active Substance: GENTAMICIN SULFATE
     Dosage: UNK UNK, 1-2 TIMES A DAY
     Dates: start: 20191025
  4. CALONAL [Concomitant]
     Active Substance: ACETAMINOPHEN
     Dosage: 600 MG, WITHIN 3 TIMES A DAY
     Dates: start: 20191026
  5. ROSUVASTATIN. [Concomitant]
     Active Substance: ROSUVASTATIN
     Dosage: 5 MG, QD
     Dates: start: 20191023
  6. RIVAROXABAN [Suspect]
     Active Substance: RIVAROXABAN
     Indication: DEEP VEIN THROMBOSIS
     Dosage: 15 MG, BID
     Route: 048
     Dates: start: 20190924, end: 20191014
  7. STATIN EZ [Concomitant]
     Active Substance: ATORVASTATIN CALCIUM\EZETIMIBE

REACTIONS (1)
  - Deep vein thrombosis [Recovering/Resolving]

NARRATIVE: CASE EVENT DATE: 20191018
